FAERS Safety Report 6871612-0 (Version None)
Quarter: 2010Q2

REPORT INFORMATION
  Report Type: 
  Country: None (occurrence: None)
  Receive Date: 20100610
  Receipt Date: 20100602
  Transmission Date: 20101027
  Serious: No
  Sender: FDA-Public Use
  Company Number: 2010-00463

PATIENT
  Age: 55 Year
  Sex: Female
  Weight: 95.2554 kg

DRUGS (6)
  1. ZICAM EXTREME CONGESTION RELIEF [Suspect]
  2. ZICAM COUGH MAX COUGH SPRAY [Suspect]
  3. ZICAM COUGH MAX COUGH MELTS [Suspect]
     Dosage: 2XW
  4. LISINOPRIL [Concomitant]
  5. FLUOXETINE [Concomitant]
  6. CLARITHROMYCIN [Concomitant]

REACTIONS (2)
  - AGEUSIA [None]
  - ANOSMIA [None]
